FAERS Safety Report 24079527 (Version 1)
Quarter: 2024Q3

REPORT INFORMATION
  Report Type: Spontaneous
  Country: US (occurrence: None)
  Receive Date: 20240710
  Receipt Date: 20240710
  Transmission Date: 20241016
  Serious: Yes (Hospitalization)
  Sender: Public
  Company Number: None

PATIENT
  Sex: Female

DRUGS (5)
  1. TEZSPIRE [Suspect]
     Active Substance: TEZEPELUMAB-EKKO
     Dosage: OTHER FREQUENCY : EVERY 28 DAYS;?
     Route: 058
  2. MONTELUKAST [Concomitant]
     Active Substance: MONTELUKAST SODIUM
  3. BUDES/FORMOT AER [Concomitant]
  4. AIRSUPRA AER [Concomitant]
  5. LORATADINE [Concomitant]

REACTIONS (2)
  - Quality of life decreased [None]
  - Asthma [None]
